FAERS Safety Report 23108090 (Version 2)
Quarter: 2023Q4

REPORT INFORMATION
  Report Type: Spontaneous
  Country: GB (occurrence: GB)
  Receive Date: 20231026
  Receipt Date: 20231026
  Transmission Date: 20240110
  Serious: Yes (Life-Threatening, Other)
  Sender: FDA-Public Use
  Company Number: None

PATIENT
  Sex: Female

DRUGS (1)
  1. SUGAMMADEX SODIUM [Suspect]
     Active Substance: SUGAMMADEX SODIUM
     Indication: Neuromuscular blockade
     Dosage: 200 MILLIGRAM
     Dates: start: 20231015

REACTIONS (1)
  - Bronchospasm [Recovering/Resolving]

NARRATIVE: CASE EVENT DATE: 20231015
